FAERS Safety Report 12618770 (Version 2)
Quarter: 2016Q3

REPORT INFORMATION
  Report Type: Spontaneous
  Country: BR (occurrence: BR)
  Receive Date: 20160803
  Receipt Date: 20160822
  Transmission Date: 20161109
  Serious: Yes (Other)
  Sender: FDA-Public Use
  Company Number: BR-PFIZER INC-2016337614

PATIENT
  Age: 66 Year
  Sex: Female

DRUGS (1)
  1. FELDENE [Suspect]
     Active Substance: PIROXICAM
     Indication: PAIN
     Dosage: 20 MG, UNK

REACTIONS (5)
  - Chromaturia [Unknown]
  - Drug ineffective [Unknown]
  - Urinary retention [Unknown]
  - Product quality issue [Unknown]
  - Poor quality drug administered [Unknown]
